FAERS Safety Report 21230000 (Version 2)
Quarter: 2022Q3

REPORT INFORMATION
  Report Type: Spontaneous
  Country: US (occurrence: US)
  Receive Date: 20220818
  Receipt Date: 20220902
  Transmission Date: 20221027
  Serious: Yes (Other)
  Sender: FDA-Public Use
  Company Number: US-TEVA-2022-US-2064520

PATIENT
  Age: 14 Year
  Sex: Male

DRUGS (6)
  1. PREDNISONE [Suspect]
     Active Substance: PREDNISONE
     Indication: Chronic graft versus host disease in skin
     Dosage: 1 MG/KG DAILY;
     Route: 048
  2. PREDNISONE [Suspect]
     Active Substance: PREDNISONE
     Dosage: 60 MILLIGRAM DAILY;
     Route: 048
  3. RITUXIMAB [Suspect]
     Active Substance: RITUXIMAB
     Indication: Chronic graft versus host disease in skin
     Dosage: WEEKLY FOR FOUR DOSES
     Route: 042
  4. RITUXIMAB [Suspect]
     Active Substance: RITUXIMAB
     Dosage: FOUR MONTHLY INFUSIONS
     Route: 041
  5. RUXOLITINIB [Suspect]
     Active Substance: RUXOLITINIB
     Indication: Chronic graft versus host disease in skin
     Dosage: 10 MILLIGRAM DAILY; ADDITIONAL INFO: ACTION TAKEN: THERAPY WAS CONTINUED , DURATION : 6 MONTHS
     Route: 048
  6. RUXOLITINIB [Suspect]
     Active Substance: RUXOLITINIB
     Dosage: 20 MILLIGRAM DAILY; ADDITIONAL INFO: ACTION TAKEN: THERAPY WAS CONTINUED  , DURATION : 6 MONTHS
     Route: 048

REACTIONS (2)
  - Drug ineffective [Unknown]
  - Mycobacterium kansasii infection [Unknown]
